FAERS Safety Report 19721344 (Version 4)
Quarter: 2021Q4

REPORT INFORMATION
  Report Type: Report from Study
  Country: US (occurrence: US)
  Receive Date: 20210818
  Receipt Date: 20211130
  Transmission Date: 20220303
  Serious: No
  Sender: FDA-Public Use
  Company Number: NVSC2021US185014

PATIENT
  Sex: Female

DRUGS (1)
  1. ENTRESTO [Suspect]
     Active Substance: SACUBITRIL\VALSARTAN
     Indication: Product used for unknown indication
     Dosage: 1 DF, BID (49/51MG)
     Route: 048
     Dates: start: 20210807

REACTIONS (8)
  - Memory impairment [Unknown]
  - Dyspnoea [Recovering/Resolving]
  - Somnolence [Unknown]
  - Rhinorrhoea [Unknown]
  - Exposure to SARS-CoV-2 [Unknown]
  - Cardiac disorder [Unknown]
  - Malaise [Unknown]
  - Nasopharyngitis [Unknown]
